FAERS Safety Report 7013722-3 (Version None)
Quarter: 2010Q3

REPORT INFORMATION
  Report Type: 
  Country: None (occurrence: None)
  Receive Date: 20100924
  Receipt Date: 20100913
  Transmission Date: 20110219
  Serious: Yes (Other)
  Sender: FDA-Public Use
  Company Number: US-PFIZER INC-2010072127

PATIENT
  Sex: Female
  Weight: 59.1 kg

DRUGS (1)
  1. SUNITINIB MALATE [Suspect]
     Indication: BLADDER CANCER
     Dosage: 37.5 MG, 1X/DAY
     Route: 048
     Dates: start: 20090820, end: 20090908

REACTIONS (1)
  - PALMAR-PLANTAR ERYTHRODYSAESTHESIA SYNDROME [None]
